FAERS Safety Report 8505169-5 (Version None)
Quarter: 2012Q3

REPORT INFORMATION
  Report Type: 
  Country: None (occurrence: None)
  Receive Date: 20120712
  Receipt Date: 20120629
  Transmission Date: 20120928
  Serious: Yes (Death, Other)
  Sender: FDA-Public Use
  Company Number: US-UCBSA-061124

PATIENT
  Age: 29 Year
  Sex: Male

DRUGS (3)
  1. LEVETIRACETAM [Suspect]
     Route: 048
     Dates: start: 20090101
  2. LEVETIRACETAM [Suspect]
     Dosage: UNKNOWN DOSE (WEANED OFF)
     Route: 048
  3. LEVETIRACETAM [Suspect]
     Dosage: UNKNOWN DOSE

REACTIONS (2)
  - DEATH [None]
  - CONVULSION [None]
